FAERS Safety Report 5113594-8 (Version None)
Quarter: 2006Q3

REPORT INFORMATION
  Report Type: 
  Country: None (occurrence: None)
  Receive Date: 20060921
  Receipt Date: 20060921
  Transmission Date: 20061208
  Serious: No
  Sender: FDA-Public Use
  Company Number: None

PATIENT
  Age: 67 Year
  Sex: Male
  Weight: 91.1 kg

DRUGS (15)
  1. NEVIRAPINE [Suspect]
     Indication: ACQUIRED IMMUNODEFICIENCY SYNDROME
     Dosage: 200 MG PO BID
     Route: 048
     Dates: start: 20060510, end: 20060518
  2. NEVIRAPINE [Suspect]
     Indication: HIV INFECTION
     Dosage: 200 MG PO BID
     Route: 048
     Dates: start: 20060510, end: 20060518
  3. DOCUSATE [Concomitant]
  4. DIDANOSINE [Concomitant]
  5. LAMIVUDINE [Concomitant]
  6. CACLIUM ACETATE [Concomitant]
  7. SODIUM CITRATE/CITRIC ACID [Concomitant]
  8. EPOETIN ALFA [Concomitant]
  9. PRAVASTATIN [Concomitant]
  10. AMLODIPINE [Concomitant]
  11. DAPSONE [Concomitant]
  12. METOPROLOL TARTRATE [Concomitant]
  13. LISINOPRIL [Concomitant]
  14. FUROSEMIDE [Concomitant]
  15. IMMUNE GLOBULIN INTRAVENOUS (HUMAN) [Concomitant]

REACTIONS (7)
  - ASTHENIA [None]
  - CHILLS [None]
  - DIARRHOEA [None]
  - HAEMOPTYSIS [None]
  - HEPATITIS [None]
  - INCORRECT DOSE ADMINISTERED [None]
  - TREATMENT NONCOMPLIANCE [None]
